FAERS Safety Report 10232375 (Version 1)
Quarter: 2014Q2

REPORT INFORMATION
  Report Type: Spontaneous
  Country: US (occurrence: None)
  Receive Date: 20140610
  Receipt Date: 20140610
  Transmission Date: 20141212
  Serious: Yes (Hospitalization, Other)
  Sender: FDA-Public Use
  Company Number: None

PATIENT
  Age: 49 Year
  Sex: Male
  Weight: 105.24 kg

DRUGS (10)
  1. INDOMETHACIN [Suspect]
     Indication: GOUT
     Dosage: 1 CAPSULE  3 TIMES A DAY  BY MOUTH
     Route: 048
     Dates: start: 20140515, end: 20140516
  2. OMEPRAZOLE DR? [Concomitant]
  3. LEVOTHYROXINE [Concomitant]
  4. MULTI-VIATIAM NO IRON [Concomitant]
  5. VIATIAM C [Concomitant]
  6. B-COMPLEX [Concomitant]
  7. D-3 [Concomitant]
  8. MILK-THISTOL [Concomitant]
  9. FISH OIL [Concomitant]
  10. OMEGA 3 [Concomitant]

REACTIONS (3)
  - Infection [None]
  - Hot flush [None]
  - Hyperhidrosis [None]
